FAERS Safety Report 8431291-8 (Version None)
Quarter: 2012Q2

REPORT INFORMATION
  Report Type: 
  Country: None (occurrence: None)
  Receive Date: 20120613
  Receipt Date: 20120604
  Transmission Date: 20120825
  Serious: Yes (Other)
  Sender: FDA-Public Use
  Company Number: US-BIOGENIDEC-2012BI019599

PATIENT
  Age: 64 Year
  Sex: Male
  Weight: 77 kg

DRUGS (14)
  1. TYSABRI [Suspect]
     Indication: MULTIPLE SCLEROSIS
     Route: 042
     Dates: start: 20080430, end: 20120424
  2. OMEPRAZOLE [Concomitant]
  3. CELEXA [Concomitant]
     Indication: DEPRESSION
     Route: 048
     Dates: start: 20100812
  4. NEURONTIN [Concomitant]
  5. ARTANE [Concomitant]
     Indication: TREMOR
     Route: 048
     Dates: start: 20081216
  6. CRESTOR [Concomitant]
     Indication: BLOOD CHOLESTEROL
     Route: 048
     Dates: start: 20110906
  7. BUTALBITAL ACETAMINOPHEN CAFFEINE [Concomitant]
     Indication: HEADACHE
     Dates: start: 20111220
  8. PLAVIX [Concomitant]
  9. LOMOTIL [Concomitant]
  10. DITROPAN [Concomitant]
     Route: 048
     Dates: start: 20110523
  11. KEPPRA [Concomitant]
     Indication: CONVULSION
     Route: 048
     Dates: start: 20110421, end: 20120411
  12. ARICEPT [Concomitant]
     Indication: DEMENTIA
     Route: 048
     Dates: start: 20081229
  13. BACLOFEN [Concomitant]
     Indication: MUSCLE SPASTICITY
     Route: 048
     Dates: start: 20070619
  14. VIMPAT [Concomitant]

REACTIONS (1)
  - B-CELL LYMPHOMA [None]
